FAERS Safety Report 10163404 (Version 2)
Quarter: 2014Q2

REPORT INFORMATION
  Report Type: Spontaneous
  Country: US (occurrence: US)
  Receive Date: 20140509
  Receipt Date: 20140513
  Transmission Date: 20141212
  Serious: Yes (Hospitalization)
  Sender: FDA-Public Use
  Company Number: US-TEVA-479811USA

PATIENT
  Sex: Female

DRUGS (1)
  1. COPAXONE [Suspect]
     Indication: MULTIPLE SCLEROSIS
     Dates: start: 19980805

REACTIONS (4)
  - Rectal haemorrhage [Recovering/Resolving]
  - Pallor [Unknown]
  - Anaemia [Unknown]
  - Mental impairment [Recovered/Resolved]
